FAERS Safety Report 9825625 (Version 1)
Quarter: 2014Q1

REPORT INFORMATION
  Report Type: Spontaneous
  Country: TW (occurrence: TW)
  Receive Date: 20140117
  Receipt Date: 20140117
  Transmission Date: 20141002
  Serious: Yes (Hospitalization)
  Sender: FDA-Public Use
  Company Number: TW-JNJFOC-20140103243

PATIENT
  Age: 21 Year
  Sex: Male

DRUGS (4)
  1. HALDOL [Suspect]
     Indication: AGGRESSION
     Dosage: SECOND DAY AS NEEDED
     Route: 030
  2. HALDOL [Suspect]
     Indication: AGGRESSION
     Dosage: FIRST DAY AS NEEDED
     Route: 030
  3. HALDOL [Suspect]
     Indication: AGITATION
     Dosage: SECOND DAY AS NEEDED
     Route: 030
  4. HALDOL [Suspect]
     Indication: AGITATION
     Dosage: FIRST DAY AS NEEDED
     Route: 030

REACTIONS (4)
  - Neuroleptic malignant syndrome [Recovered/Resolved]
  - Leukocytosis [Unknown]
  - Thrombocytosis [Unknown]
  - Aspartate aminotransferase increased [Unknown]
